FAERS Safety Report 11176290 (Version 2)
Quarter: 2015Q3

REPORT INFORMATION
  Report Type: Spontaneous
  Country: JP (occurrence: JP)
  Receive Date: 20150609
  Receipt Date: 20150716
  Transmission Date: 20151125
  Serious: Yes (Hospitalization)
  Sender: FDA-Public Use
  Company Number: PHJP2015JP009121

PATIENT
  Age: 33 Year
  Sex: Male

DRUGS (1)
  1. CLOZARIL [Suspect]
     Active Substance: CLOZAPINE
     Indication: SCHIZOPHRENIA
     Dosage: 300 MG, QD
     Route: 048
     Dates: start: 20150318, end: 20150601

REACTIONS (3)
  - Jaw fracture [Recovering/Resolving]
  - Suicide attempt [Unknown]
  - Traumatic haemorrhage [Recovering/Resolving]

NARRATIVE: CASE EVENT DATE: 20150601
